FAERS Safety Report 20364225 (Version 1)
Quarter: 2022Q1

REPORT INFORMATION
  Report Type: Spontaneous
  Country: US (occurrence: None)
  Receive Date: 20220121
  Receipt Date: 20220121
  Transmission Date: 20220423
  Serious: Yes (Hospitalization)
  Sender: FDA-Public Use
  Company Number: None

PATIENT
  Sex: Female
  Weight: 56.4 kg

DRUGS (1)
  1. FEMARA [Suspect]
     Active Substance: LETROZOLE

REACTIONS (9)
  - Back pain [None]
  - Procedural complication [None]
  - Abdominal pain upper [None]
  - Blood lactic acid increased [None]
  - Peritonitis [None]
  - Procedural site reaction [None]
  - Erythema [None]
  - Enterocutaneous fistula [None]
  - Wound drainage [None]

NARRATIVE: CASE EVENT DATE: 20210503
